FAERS Safety Report 14195758 (Version 1)
Quarter: 2017Q4

REPORT INFORMATION
  Report Type: Spontaneous
  Country: US (occurrence: US)
  Receive Date: 20171116
  Receipt Date: 20171116
  Transmission Date: 20180321
  Serious: No
  Sender: FDA-Public Use
  Company Number: US-BAUSCH-BL-2017-017317

PATIENT
  Age: 67 Year
  Sex: Male
  Weight: 59.93 kg

DRUGS (1)
  1. XENAZINE [Suspect]
     Active Substance: TETRABENAZINE
     Indication: TARDIVE DYSKINESIA
     Route: 048
     Dates: start: 201612, end: 2017

REACTIONS (5)
  - Weight decreased [Recovering/Resolving]
  - Malaise [Unknown]
  - Akathisia [Recovered/Resolved]
  - Disease recurrence [Not Recovered/Not Resolved]
  - Off label use [Recovered/Resolved]

NARRATIVE: CASE EVENT DATE: 201612
